FAERS Safety Report 6920181-5 (Version None)
Quarter: 2010Q4

REPORT INFORMATION
  Report Type: 
  Country: None (occurrence: None)
  Receive Date: 20100809
  Receipt Date: 20100726
  Transmission Date: 20110411
  Serious: Yes (Hospitalization, Other)
  Sender: FDA-Public Use
  Company Number: 2009SP013780

PATIENT
  Age: 73 Year
  Sex: Female
  Weight: 53 kg

DRUGS (13)
  1. PEGINTERFERON ALFA-2B [Suspect]
     Indication: HEPATITIS C
     Dosage: 0.25 ML; QW; SC
     Route: 058
     Dates: start: 20071121, end: 20090824
  2. RINDERON-V (BETAMETHASONE VALERATE /00008503/) [Suspect]
     Indication: PRURITUS
     Dosage: PRN; TOP
     Route: 061
     Dates: start: 20080312
  3. NORVASC [Suspect]
     Indication: HYPERTENSION
     Dosage: 5 MG; QD; PO
     Route: 048
     Dates: end: 20090817
  4. DETRUSITOL (TOLTERODINE) [Suspect]
     Indication: CYSTITIS INTERSTITIAL
     Dosage: 4 MG; QD; PO
     Route: 048
  5. URSO 250 [Suspect]
     Indication: HEPATITIS C
     Dosage: 2 DF; TID; PO
     Route: 048
  6. HICEE (ASCORBIC ACID /00008001/) [Suspect]
     Indication: VITAMIN SUPPLEMENTATION
     Dosage: 1 DF; BID; PO
     Route: 048
  7. PL GRAN. (PL GRAN.) [Suspect]
     Indication: PROPHYLAXIS
     Dosage: 1 DF; PRN; PO
     Route: 048
     Dates: start: 20080326
  8. BIOFERMIN (BIOFERMIN) [Suspect]
     Indication: FLATULENCE
     Dosage: 3 DF; TID; PO
     Route: 048
     Dates: start: 20080423
  9. LOXONIN (LOXOPROFEN) [Suspect]
     Indication: OSTEOARTHRITIS
     Dosage: 60 MG; PRN; PO
     Route: 048
     Dates: start: 20080327
  10. CIPROFLOXACIN HCL [Concomitant]
  11. VOLTAREN [Concomitant]
  12. HIRUDOID [Concomitant]
  13. ORGADRONE [Concomitant]

REACTIONS (2)
  - HEPATIC NEOPLASM MALIGNANT [None]
  - VARICES OESOPHAGEAL [None]
